FAERS Safety Report 9905448 (Version 2)
Quarter: 2014Q1

REPORT INFORMATION
  Report Type: Report from Study
  Country: US (occurrence: US)
  Receive Date: 20140218
  Receipt Date: 20140218
  Transmission Date: 20141002
  Serious: Yes (Hospitalization)
  Sender: FDA-Public Use
  Company Number: US-ALEXION-A201200967

PATIENT
  Sex: 0

DRUGS (5)
  1. SOLIRIS [Suspect]
     Indication: HAEMOLYTIC URAEMIC SYNDROME
     Dosage: 600 MG, Q2W
     Route: 042
     Dates: start: 20130420
  2. APRESOLINE [Concomitant]
     Indication: BLOOD PRESSURE
     Dosage: 25 MG, UNK
  3. VASOTEC [Concomitant]
     Indication: BLOOD PRESSURE
     Dosage: 5 MG, UNK
  4. LABETALOL HCL [Concomitant]
     Indication: BLOOD PRESSURE
     Dosage: 300 MG, UNK
  5. NORVASC [Concomitant]
     Indication: BLOOD PRESSURE
     Dosage: 10 MG, UNK

REACTIONS (2)
  - Unevaluable event [Unknown]
  - Abdominal pain upper [Recovered/Resolved]
